FAERS Safety Report 6713317-2 (Version None)
Quarter: 2010Q2

REPORT INFORMATION
  Report Type: 
  Country: None (occurrence: None)
  Receive Date: 20100506
  Receipt Date: 20100428
  Transmission Date: 20101027
  Serious: Yes (Other)
  Sender: FDA-Public Use
  Company Number: JP-ROCHE-697422

PATIENT
  Sex: Male
  Weight: 10 kg

DRUGS (5)
  1. TAMIFLU [Suspect]
     Indication: INFLUENZA
     Route: 048
     Dates: start: 20100405, end: 20100407
  2. EPOCELIN [Concomitant]
     Dosage: DRUG: CEFTIZOXIME SODIUM, DOSE FORM: SUPPOSITORIAE RECTALE
     Route: 054
     Dates: start: 20100405, end: 20100405
  3. ANHIBA [Concomitant]
     Dosage: DRUG: ACETAMINOPHEN, DOSE FORM: SUPPOSITORIAE RECTALE.
     Route: 054
     Dates: start: 20100405, end: 20100406
  4. ALIMEZINE [Concomitant]
     Route: 048
     Dates: start: 20100405, end: 20100410
  5. MUCODYNE [Concomitant]
     Route: 048
     Dates: start: 20100405, end: 20100410

REACTIONS (4)
  - DIARRHOEA [None]
  - GENERALISED ERYTHEMA [None]
  - HEPATIC FUNCTION ABNORMAL [None]
  - LIVER DISORDER [None]
